FAERS Safety Report 4522116-1 (Version None)
Quarter: 2004Q4

REPORT INFORMATION
  Report Type: 
  Country: None (occurrence: None)
  Receive Date: 20041206
  Receipt Date: 20041119
  Transmission Date: 20050328
  Serious: Yes (Hospitalization)
  Sender: FDA-Public Use
  Company Number: 2004BI000102

PATIENT
  Age: 54 Year
  Sex: Female
  Weight: 90.7194 kg

DRUGS (4)
  1. AVONEX [Suspect]
     Indication: MULTIPLE SCLEROSIS
     Dosage: 30 UG; QW; IM
     Route: 030
     Dates: start: 19990101
  2. AVONEX [Suspect]
     Indication: MULTIPLE SCLEROSIS
     Dosage: 30 UG; QW; IM
     Route: 030
     Dates: end: 20040901
  3. ASPIRIN [Concomitant]
  4. ANTIHYPERTENSIVE [Concomitant]

REACTIONS (10)
  - ARTHRALGIA [None]
  - ARTHRITIS [None]
  - BACK PAIN [None]
  - BALANCE DISORDER [None]
  - BUTTOCK PAIN [None]
  - DYSARTHRIA [None]
  - FALL [None]
  - MUSCLE CRAMP [None]
  - ROAD TRAFFIC ACCIDENT [None]
  - SPEECH DISORDER [None]
